FAERS Safety Report 7893727-0 (Version None)
Quarter: 2011Q4

REPORT INFORMATION
  Report Type: 
  Country: None (occurrence: None)
  Receive Date: 20111104
  Receipt Date: 20111028
  Transmission Date: 20120403
  Serious: Yes (Other)
  Sender: FDA-Public Use
  Company Number: US-PFIZER INC-2011264801

PATIENT
  Sex: Female
  Weight: 59.41 kg

DRUGS (17)
  1. PREMARIN [Concomitant]
     Indication: VULVOVAGINAL DRYNESS
  2. CALCIUM [Concomitant]
     Indication: MINERAL SUPPLEMENTATION
     Dosage: 1200 MG, UNK
  3. MAGNESIUM [Concomitant]
     Indication: MINERAL SUPPLEMENTATION
     Dosage: 500 MG, UNK
  4. FISH OIL [Concomitant]
     Dosage: UNK
  5. CYMBALTA [Concomitant]
     Indication: PAIN
  6. TRAZODONE [Concomitant]
     Indication: SLEEP DISORDER
     Dosage: 50 MG, DAILY
  7. VITAMIN D [Concomitant]
     Indication: VITAMIN SUPPLEMENTATION
     Dosage: UNK
  8. CELEBREX [Suspect]
     Indication: SPINAL OSTEOARTHRITIS
     Dosage: 200 MG, 1X/DAY
     Dates: start: 20111026
  9. PREMARIN [Concomitant]
     Indication: ATROPHY
  10. CYMBALTA [Concomitant]
     Indication: ANXIETY
     Dosage: 60 MG, UNK
     Dates: start: 20081001
  11. NASONEX [Concomitant]
     Indication: RHINITIS
     Dosage: 50 UG, UNK
  12. PREMARIN [Concomitant]
     Indication: HYSTERECTOMY
     Dosage: UNK
  13. AZELASTINE HYDROCHLORIDE [Concomitant]
     Indication: RHINITIS
     Dosage: UNK
  14. MULTI-VITAMINS [Concomitant]
     Indication: SUPPLEMENTATION THERAPY
     Dosage: UNK
  15. SIMVASTATIN/NIACIN [Concomitant]
     Indication: BLOOD CHOLESTEROL ABNORMAL
     Dosage: 500/20MG, UNK
  16. CELEBREX [Suspect]
     Indication: OSTEOPENIA
  17. CELEBREX [Suspect]
     Indication: PAIN

REACTIONS (1)
  - SUPRAVENTRICULAR EXTRASYSTOLES [None]
